FAERS Safety Report 23612248 (Version 1)
Quarter: 2024Q1

REPORT INFORMATION
  Report Type: Spontaneous
  Country: US (occurrence: None)
  Receive Date: 20240308
  Receipt Date: 20240308
  Transmission Date: 20240410
  Serious: No
  Sender: FDA-Public Use
  Company Number: None

PATIENT
  Age: 33 Year
  Sex: Male
  Weight: 146.25 kg

DRUGS (3)
  1. QELBREE [Suspect]
     Active Substance: VILOXAZINE HYDROCHLORIDE
     Indication: Attention deficit hyperactivity disorder
     Dosage: OTHER QUANTITY : 1 CAPSULE(S);?
     Route: 048
     Dates: start: 20240222, end: 20240307
  2. VYVANSE [Concomitant]
     Active Substance: LISDEXAMFETAMINE DIMESYLATE
  3. MELATONIN [Concomitant]

REACTIONS (28)
  - Mood swings [None]
  - Anxiety [None]
  - Depression [None]
  - Crying [None]
  - Insomnia [None]
  - Nausea [None]
  - Constipation [None]
  - Tachycardia [None]
  - Fatigue [None]
  - Vomiting [None]
  - Dizziness [None]
  - Headache [None]
  - Pain [None]
  - Pyrexia [None]
  - Chills [None]
  - Eye pain [None]
  - Photosensitivity reaction [None]
  - Suicidal ideation [None]
  - Vomiting [None]
  - Depressed mood [None]
  - Blood pressure increased [None]
  - Trismus [None]
  - Dysstasia [None]
  - Hypokinesia [None]
  - Withdrawal syndrome [None]
  - Therapy interrupted [None]
  - Screaming [None]
  - Middle insomnia [None]

NARRATIVE: CASE EVENT DATE: 20240308
